FAERS Safety Report 7046856-8 (Version None)
Quarter: 2010Q4

REPORT INFORMATION
  Report Type: 
  Country: None (occurrence: None)
  Receive Date: 20101015
  Receipt Date: 20101006
  Transmission Date: 20110411
  Serious: Yes (Other)
  Sender: FDA-Public Use
  Company Number: IE-ASTRAZENECA-2010SE47077

PATIENT
  Age: 65 Year
  Sex: Male

DRUGS (3)
  1. MEROPENEM [Suspect]
     Indication: BLOOD CULTURE POSITIVE
     Route: 042
     Dates: start: 20100920
  2. TARGOCID [Suspect]
     Indication: BLOOD CULTURE POSITIVE
     Route: 042
     Dates: start: 20100920
  3. GENTAMICIN [Concomitant]

REACTIONS (1)
  - ANAPHYLACTIC REACTION [None]
